FAERS Safety Report 21637354 (Version 1)
Quarter: 2022Q4

REPORT INFORMATION
  Report Type: Spontaneous
  Country: US (occurrence: US)
  Receive Date: 20221124
  Receipt Date: 20221124
  Transmission Date: 20230113
  Serious: Yes (Hospitalization, Other)
  Sender: FDA-Public Use
  Company Number: US-AUROBINDO-AUR-APL-2022-049453

PATIENT
  Sex: Male

DRUGS (1)
  1. VIGABATRIN [Suspect]
     Active Substance: VIGABATRIN
     Indication: Seizure
     Dosage: 1600 MILLIGRAM
     Route: 065

REACTIONS (2)
  - Pancreatitis [Unknown]
  - Pneumonia [Unknown]
